FAERS Safety Report 4599935-9 (Version None)
Quarter: 2005Q1

REPORT INFORMATION
  Report Type: 
  Country: None (occurrence: None)
  Receive Date: 20050303
  Receipt Date: 20050214
  Transmission Date: 20050727
  Serious: Yes (Hospitalization, Disabling)
  Sender: FDA-Public Use
  Company Number: WAES 0410BRA00444

PATIENT
  Age: 53 Year
  Sex: Female

DRUGS (9)
  1. VIOXX [Suspect]
     Indication: RHEUMATOID ARTHRITIS
     Dosage: 50 MG/DAILY/PO
     Route: 048
     Dates: start: 20040714, end: 20041001
  2. ACETAMINOPHEN [Concomitant]
  3. AMITRIPTYLINE HYDROCHLORIDE [Concomitant]
  4. BROMAZEPAM [Concomitant]
  5. CAPTOPRIL [Concomitant]
  6. CELECOXIB [Concomitant]
  7. HYDROCHLOROTHIAZIDE [Concomitant]
  8. LEFLUNOMIDE [Concomitant]
  9. OMEPRAZOLE [Concomitant]

REACTIONS (2)
  - BLOOD PRESSURE SYSTOLIC INCREASED [None]
  - CARDIAC FAILURE CONGESTIVE [None]
